FAERS Safety Report 5456672-6 (Version None)
Quarter: 2007Q3

REPORT INFORMATION
  Report Type: 
  Country: None (occurrence: None)
  Receive Date: 20070918
  Receipt Date: 20070330
  Transmission Date: 20080115
  Serious: Yes (Other)
  Sender: FDA-Public Use
  Company Number: US-ASTRAZENECA-2006UW25518

PATIENT
  Sex: Female
  Weight: 81.8 kg

DRUGS (4)
  1. SEROQUEL [Suspect]
     Indication: BIPOLAR DISORDER
     Dosage: 25-100 MG
     Route: 048
     Dates: start: 20050201, end: 20060401
  2. GEODON [Concomitant]
  3. RISPERDAL [Concomitant]
     Dates: start: 20040812
  4. OLANZAPINE [Concomitant]
     Dates: start: 19970101, end: 20020101

REACTIONS (2)
  - DIABETES MELLITUS [None]
  - PANCREATITIS [None]
